FAERS Safety Report 22160006 (Version 1)
Quarter: 2023Q1

REPORT INFORMATION
  Report Type: Spontaneous
  Country: US (occurrence: US)
  Receive Date: 20230331
  Receipt Date: 20230331
  Transmission Date: 20230417
  Serious: No
  Sender: FDA-Public Use
  Company Number: US-SA-SAC20230329000678

PATIENT
  Sex: Male

DRUGS (1)
  1. PLAVIX [Suspect]
     Active Substance: CLOPIDOGREL BISULFATE
     Dosage: UNK
     Route: 065

REACTIONS (8)
  - Cardiac disorder [Unknown]
  - Confusional state [Unknown]
  - Amnesia [Unknown]
  - Vertigo [Unknown]
  - Weight decreased [Unknown]
  - Malaise [Unknown]
  - Dehydration [Unknown]
  - Fall [Unknown]
